FAERS Safety Report 9782342 (Version 1)
Quarter: 2013Q4

REPORT INFORMATION
  Report Type: Spontaneous
  Country: BE (occurrence: BE)
  Receive Date: 20131226
  Receipt Date: 20131226
  Transmission Date: 20140711
  Serious: Yes (Hospitalization, Other)
  Sender: FDA-Public Use
  Company Number: PHHY2013BE148075

PATIENT
  Age: 27 Year
  Sex: Male

DRUGS (19)
  1. EXJADE [Suspect]
     Indication: IRON OVERLOAD
     Dosage: 500 MG, BID
  2. EXJADE [Suspect]
     Dosage: 500 MG, TID (30 MG/KG)
     Dates: start: 200809
  3. EXJADE [Suspect]
     Dosage: UNK
     Dates: end: 201101
  4. EXJADE [Suspect]
     Dosage: UNK
     Dates: start: 201101
  5. EXJADE [Suspect]
     Dosage: UNK
     Dates: start: 201202
  6. EXJADE [Suspect]
     Dosage: 500 MG, DAILY
     Dates: start: 20130702, end: 20130715
  7. EXJADE [Suspect]
     Dosage: 500 MG, BID
     Dates: start: 20130716, end: 20130812
  8. EXJADE [Suspect]
     Dosage: 500 MG, TID
     Dates: start: 20130813, end: 20130827
  9. DESFERAL [Suspect]
     Indication: THALASSAEMIA BETA
     Dosage: UNK
     Route: 042
  10. DESFERAL [Suspect]
     Indication: IRON OVERLOAD
     Dosage: UNK
     Route: 042
     Dates: start: 200509
  11. DESFERAL [Suspect]
     Dosage: UNK
     Route: 042
     Dates: start: 201003, end: 201003
  12. DESFERAL [Suspect]
     Dosage: UNK (INTENSIFICATION OF TREATMENT SUBCUTANEOUSLY AT HOME)
     Route: 058
     Dates: start: 201003
  13. DESFERAL [Suspect]
     Dosage: 3 G, (3 GM OVER 8 TO 12 HOURS DAILY)
     Route: 042
     Dates: start: 201101, end: 201102
  14. DESFERAL [Suspect]
     Dosage: UNK
     Route: 058
     Dates: start: 201102
  15. DESFERAL [Suspect]
     Dosage: UNK
     Route: 042
     Dates: start: 201202, end: 201202
  16. DESFERAL [Suspect]
     Dosage: UNK
     Route: 058
     Dates: start: 201202
  17. DESFERAL [Suspect]
     Dosage: 1500 MG, DAILY
     Route: 058
     Dates: start: 20130827
  18. FERRIPROX [Suspect]
     Indication: SERUM FERRITIN INCREASED
     Dosage: 7.5 DF, (7.5 X 500 MG DAILY)
  19. FERRIPROX [Suspect]
     Dosage: UNK
     Dates: start: 200801

REACTIONS (7)
  - Dyspnoea [Recovered/Resolved]
  - Orthopnoea [Recovered/Resolved]
  - Lung infiltration [Recovered/Resolved]
  - Haemophilus infection [Recovered/Resolved]
  - Agranulocytosis [Recovered/Resolved]
  - Staphylococcal sepsis [Recovered/Resolved]
  - Device related sepsis [Recovered/Resolved]
